FAERS Safety Report 5254479-6 (Version None)
Quarter: 2007Q1

REPORT INFORMATION
  Report Type: 
  Country: None (occurrence: None)
  Receive Date: 20070302
  Receipt Date: 20070221
  Transmission Date: 20070707
  Serious: Yes (Hospitalization, Other)
  Sender: FDA-Public Use
  Company Number: US-PFIZER INC-2007014094

PATIENT
  Sex: Female
  Weight: 70.8 kg

DRUGS (6)
  1. CHANTIX [Suspect]
     Indication: SMOKING CESSATION THERAPY
     Route: 048
     Dates: start: 20060101, end: 20060101
  2. SYNTHROID [Concomitant]
  3. PREVACID [Concomitant]
  4. LOTREL [Concomitant]
  5. SPIRONOLACTONE [Concomitant]
  6. RISPERDAL [Concomitant]

REACTIONS (7)
  - BARRETT'S OESOPHAGUS [None]
  - GASTRITIS [None]
  - HEADACHE [None]
  - NAUSEA [None]
  - NECK PAIN [None]
  - PAIN [None]
  - VOMITING [None]
